FAERS Safety Report 6087052-0 (Version None)
Quarter: 2009Q1

REPORT INFORMATION
  Report Type: 
  Country: None (occurrence: None)
  Receive Date: 20090223
  Receipt Date: 20090210
  Transmission Date: 20090719
  Serious: Yes (Disabling, Other)
  Sender: FDA-Public Use
  Company Number: PHHY2008GB20029

PATIENT
  Sex: Female

DRUGS (7)
  1. GLEEVEC [Suspect]
     Indication: CHRONIC MYELOID LEUKAEMIA
     Dosage: 400 MG/DAY
     Dates: start: 20031104, end: 20080201
  2. GLEEVEC [Suspect]
     Dosage: 600 MG DAILY
     Dates: start: 20070912, end: 20080201
  3. GLICLAZIDE [Concomitant]
     Indication: DIABETES MELLITUS
     Dosage: 320 MG DAILY
     Route: 048
  4. METFORMIN [Concomitant]
     Indication: DIABETES MELLITUS
     Dosage: 850 MG, BID
     Route: 048
  5. INDAPAMIDE [Concomitant]
     Indication: HYPERTENSION
     Dosage: 1.5 MG DAILY
     Route: 048
  6. ENALAPRIL [Concomitant]
     Indication: HYPERTENSION
     Dosage: 20 MG DAILY
     Route: 048
  7. INSULIN [Concomitant]
     Indication: DIABETES MELLITUS
     Dosage: 24 UNITS DAILY
     Route: 058

REACTIONS (2)
  - LEG AMPUTATION [None]
  - SKIN ULCER [None]
